FAERS Safety Report 21333976 (Version 23)
Quarter: 2025Q1

REPORT INFORMATION
  Report Type: Spontaneous
  Country: US (occurrence: US)
  Receive Date: 20220914
  Receipt Date: 20250312
  Transmission Date: 20250409
  Serious: No
  Sender: PFIZER
  Company Number: US-PFIZER INC-PV202200063001

PATIENT
  Age: 77 Year
  Sex: Female

DRUGS (6)
  1. IBRANCE [Suspect]
     Active Substance: PALBOCICLIB
     Indication: Breast cancer female
     Dates: start: 20220321
  2. IBRANCE [Suspect]
     Active Substance: PALBOCICLIB
     Dates: start: 20230212
  3. IBRANCE [Suspect]
     Active Substance: PALBOCICLIB
     Dates: start: 20230223
  4. IBRANCE [Suspect]
     Active Substance: PALBOCICLIB
  5. ASPIRIN [Concomitant]
     Active Substance: ASPIRIN
  6. LETROZOLE [Concomitant]
     Active Substance: LETROZOLE
     Dosage: 1 DF, DAILY

REACTIONS (7)
  - Illness [Unknown]
  - Mental disorder [Unknown]
  - Blood glucose increased [Unknown]
  - Hypertension [Unknown]
  - Renal disorder [Unknown]
  - Memory impairment [Not Recovered/Not Resolved]
  - Fatigue [Unknown]

NARRATIVE: CASE EVENT DATE: 20220101
